FAERS Safety Report 23049792 (Version 1)
Quarter: 2023Q4

REPORT INFORMATION
  Report Type: Spontaneous
  Country: US (occurrence: None)
  Receive Date: 20231007
  Receipt Date: 20231007
  Transmission Date: 20240110
  Serious: Yes (Life-Threatening)
  Sender: FDA-Public Use
  Company Number: None

PATIENT
  Age: 86 Year
  Sex: Female
  Weight: 67.3 kg

DRUGS (2)
  1. TENECTEPLASE [Suspect]
     Active Substance: TENECTEPLASE
     Indication: Ischaemic stroke
     Dosage: FREQUENCY : ONCE;?
     Route: 040
     Dates: start: 20230816, end: 20230816
  2. LISINOPRIL [Concomitant]
     Active Substance: LISINOPRIL
     Dates: end: 20230816

REACTIONS (1)
  - Angioedema [None]

NARRATIVE: CASE EVENT DATE: 20230816
